FAERS Safety Report 5642079-5 (Version None)
Quarter: 2008Q1

REPORT INFORMATION
  Report Type: 
  Country: None (occurrence: None)
  Receive Date: 20080131
  Receipt Date: 20071218
  Transmission Date: 20080703
  Serious: Yes (Hospitalization)
  Sender: FDA-Public Use
  Company Number: US200707005771

PATIENT
  Age: 49 Year
  Sex: Male
  Weight: 154.2 kg

DRUGS (8)
  1. BYETTA [Suspect]
     Dosage: 5 UG, 2/D, SUBCUTANEOUS
     Route: 058
     Dates: start: 20070601, end: 20070101
  2. BYETTA [Suspect]
     Dosage: 5 UG, 2/D, SUBCUTANEOUS
     Route: 058
     Dates: start: 20070724
  3. EXENATIDE PEN, DISPOSABLE DEVICE (EXENATIDE PEN) [Concomitant]
  4. LISINOPRIL [Concomitant]
  5. LIPITOR [Concomitant]
  6. INDOCIN [Concomitant]
  7. METFORMIN HCL [Concomitant]
  8. COLCHICINE (COLCHICINE) [Concomitant]

REACTIONS (1)
  - ANAPHYLACTIC REACTION [None]
